FAERS Safety Report 14151151 (Version 3)
Quarter: 2021Q4

REPORT INFORMATION
  Report Type: Other
  Country: FR (occurrence: None)
  Receive Date: 20171102
  Receipt Date: 20211105
  Transmission Date: 20220303
  Serious: Yes (Other)
  Sender: FDA-Public Use
  Company Number: FR-ROCHE-1550096

PATIENT
  Sex: Female

DRUGS (3)
  1. TRASTUZUMAB [Suspect]
     Active Substance: TRASTUZUMAB
     Indication: HER2 positive breast cancer
     Route: 042
  2. TRASTUZUMAB [Suspect]
     Active Substance: TRASTUZUMAB
     Route: 041
  3. EVEROLIMUS [Suspect]
     Active Substance: EVEROLIMUS
     Indication: HER2 positive breast cancer
     Route: 065

REACTIONS (5)
  - Stomatitis [Unknown]
  - Hyperglycaemia [Unknown]
  - Neutropenia [Unknown]
  - Mucosal inflammation [Unknown]
  - Transaminases increased [Unknown]
